FAERS Safety Report 17843056 (Version 4)
Quarter: 2020Q3

REPORT INFORMATION
  Report Type: Report from Study
  Country: US (occurrence: US)
  Receive Date: 20200530
  Receipt Date: 20200803
  Transmission Date: 20201103
  Serious: Yes (Hospitalization)
  Sender: FDA-Public Use
  Company Number: NVSC2020US146851

PATIENT
  Age: 17 Year
  Sex: Female
  Weight: 87.3 kg

DRUGS (7)
  1. ADAKVEO [Suspect]
     Active Substance: CRIZANLIZUMAB-TMCA
     Dosage: 400 MG
     Route: 042
     Dates: start: 20200429, end: 20200429
  2. ADAKVEO [Suspect]
     Active Substance: CRIZANLIZUMAB-TMCA
     Dosage: 400 MG
     Route: 042
     Dates: start: 20200318, end: 20200318
  3. ADAKVEO [Suspect]
     Active Substance: CRIZANLIZUMAB-TMCA
     Dosage: 400 MG
     Route: 042
     Dates: start: 20200528, end: 20200528
  4. ADAKVEO [Suspect]
     Active Substance: CRIZANLIZUMAB-TMCA
     Indication: SICKLE CELL ANAEMIA WITH CRISIS
     Route: 042
  5. ADAKVEO [Suspect]
     Active Substance: CRIZANLIZUMAB-TMCA
     Dosage: 400 MG
     Route: 042
     Dates: start: 20200624, end: 20200624
  6. ADAKVEO [Suspect]
     Active Substance: CRIZANLIZUMAB-TMCA
     Dosage: 400 MG
     Route: 042
     Dates: start: 20200722, end: 20200722
  7. ADAKVEO [Suspect]
     Active Substance: CRIZANLIZUMAB-TMCA
     Dosage: 400 MG
     Route: 042
     Dates: start: 20200402, end: 20200402

REACTIONS (2)
  - Sickle cell anaemia with crisis [Recovering/Resolving]
  - Chest pain [Recovering/Resolving]

NARRATIVE: CASE EVENT DATE: 20200515
